FAERS Safety Report 7047499-2 (Version None)
Quarter: 2010Q4

REPORT INFORMATION
  Report Type: 
  Country: None (occurrence: None)
  Receive Date: 20101008
  Receipt Date: 20100928
  Transmission Date: 20110411
  Serious: Yes (Other)
  Sender: FDA-Public Use
  Company Number: TPH-00286

PATIENT
  Age: 29 Year
  Sex: Female

DRUGS (2)
  1. TRIQUILAR [Suspect]
     Indication: ORAL CONTRACEPTION
     Route: 048
     Dates: start: 20020101, end: 20100831
  2. TRIQUILAR [Suspect]
     Indication: ORAL CONTRACEPTION
     Route: 048
     Dates: start: 20100101

REACTIONS (4)
  - DIZZINESS [None]
  - INCORRECT DRUG ADMINISTRATION DURATION [None]
  - MENSTRUAL DISORDER [None]
  - SYNCOPE [None]
